FAERS Safety Report 18954977 (Version 2)
Quarter: 2021Q2

REPORT INFORMATION
  Report Type: Spontaneous
  Country: SE (occurrence: SE)
  Receive Date: 20210301
  Receipt Date: 20210521
  Transmission Date: 20210717
  Serious: Yes (Other)
  Sender: FDA-Public Use
  Company Number: SE-ALLERGAN-2107528US

PATIENT
  Sex: Female

DRUGS (3)
  1. BELKYRA [Suspect]
     Active Substance: DEOXYCHOLIC ACID
     Indication: GENERAL PHYSICAL CONDITION ABNORMAL
     Dosage: UNK, SINGLE
     Route: 058
     Dates: start: 202004, end: 202004
  2. BOTOX [Suspect]
     Active Substance: ONABOTULINUMTOXINA
     Indication: PRODUCT USED FOR UNKNOWN INDICATION
     Dosage: UNK UNK, SINGLE
     Dates: start: 2018, end: 2018
  3. BELKYRA [Suspect]
     Active Substance: DEOXYCHOLIC ACID
     Dosage: UNK, SINGLE
     Route: 058
     Dates: start: 2018, end: 2018

REACTIONS (5)
  - Off label use [Unknown]
  - Product administered at inappropriate site [Unknown]
  - Facial paralysis [Recovered/Resolved]
  - VIIth nerve injury [Not Recovered/Not Resolved]
  - Skin laxity [Not Recovered/Not Resolved]

NARRATIVE: CASE EVENT DATE: 2018
